FAERS Safety Report 13752311 (Version 1)
Quarter: 2017Q3

REPORT INFORMATION
  Report Type: Spontaneous
  Country: US (occurrence: US)
  Receive Date: 20170713
  Receipt Date: 20170713
  Transmission Date: 20171127
  Serious: No
  Sender: FDA-Public Use
  Company Number: US-JAZZ-JPI-P-033210

PATIENT
  Age: 28 Year
  Sex: Female
  Weight: 75 kg

DRUGS (6)
  1. XYREM [Suspect]
     Active Substance: SODIUM OXYBATE
     Indication: CATAPLEXY
     Dosage: 3.75 G,BID
     Route: 048
     Dates: start: 2013
  2. XYREM [Suspect]
     Active Substance: SODIUM OXYBATE
     Indication: SOMNOLENCE
     Dosage: DOSE ADJUSTMENTS
     Route: 048
  3. PROVIGIL [Concomitant]
     Active Substance: MODAFINIL
     Indication: PRODUCT USED FOR UNKNOWN INDICATION
  4. VESICARE [Concomitant]
     Active Substance: SOLIFENACIN SUCCINATE
     Indication: PRODUCT USED FOR UNKNOWN INDICATION
  5. CONTRACEP [Concomitant]
     Indication: CONTRACEPTION
  6. XYREM [Suspect]
     Active Substance: SODIUM OXYBATE
     Indication: NARCOLEPSY
     Dosage: 2.5G, BID
     Route: 048
     Dates: start: 20130629, end: 2013

REACTIONS (19)
  - Dry throat [Not Recovered/Not Resolved]
  - Middle insomnia [Recovered/Resolved]
  - Morbid thoughts [Recovered/Resolved]
  - Muscle spasms [Recovering/Resolving]
  - Dry mouth [Not Recovered/Not Resolved]
  - Headache [Recovering/Resolving]
  - Sleep paralysis [Unknown]
  - Aphasia [Recovered/Resolved]
  - Confusional state [Recovered/Resolved]
  - Snoring [Not Recovered/Not Resolved]
  - Bite [Not Recovered/Not Resolved]
  - Fatigue [Not Recovered/Not Resolved]
  - Somnolence [Recovered/Resolved]
  - Feeling abnormal [Not Recovered/Not Resolved]
  - Anxiety [Not Recovered/Not Resolved]
  - Insomnia [Recovered/Resolved]
  - Abnormal dreams [Recovered/Resolved]
  - Nightmare [Not Recovered/Not Resolved]
  - Drug administration error [Unknown]

NARRATIVE: CASE EVENT DATE: 201306
